FAERS Safety Report 5737976-6 (Version None)
Quarter: 2008Q2

REPORT INFORMATION
  Report Type: 
  Country: None (occurrence: None)
  Receive Date: 20080514
  Receipt Date: 20080505
  Transmission Date: 20081010
  Serious: Yes (Hospitalization, Disabling)
  Sender: FDA-Public Use
  Company Number: US-SANOFI-SYNTHELABO-A03200801087

PATIENT
  Sex: Male
  Weight: 124.8 kg

DRUGS (14)
  1. AMBIEN [Suspect]
     Indication: INSOMNIA
     Route: 048
     Dates: start: 20070221, end: 20070221
  2. NASONEX [Concomitant]
     Indication: DRUG USE FOR UNKNOWN INDICATION
     Dosage: UNK
     Route: 045
  3. TUSSI MD [Concomitant]
     Indication: DRUG USE FOR UNKNOWN INDICATION
     Route: 065
  4. ASPIRIN [Concomitant]
     Indication: DRUG USE FOR UNKNOWN INDICATION
     Route: 048
  5. SINGULAIR [Concomitant]
     Indication: DRUG USE FOR UNKNOWN INDICATION
     Dosage: UNK
     Route: 048
  6. LIPITOR [Concomitant]
     Indication: DRUG USE FOR UNKNOWN INDICATION
     Route: 048
  7. BIAXIN [Concomitant]
     Indication: DRUG USE FOR UNKNOWN INDICATION
     Route: 048
  8. CARDIZEM [Concomitant]
     Indication: DRUG USE FOR UNKNOWN INDICATION
     Route: 048
  9. LANTUS [Concomitant]
     Indication: DRUG USE FOR UNKNOWN INDICATION
     Dosage: UNK
     Route: 058
  10. ZETIA [Concomitant]
     Indication: DRUG USE FOR UNKNOWN INDICATION
     Route: 048
  11. COREG [Concomitant]
     Indication: DRUG USE FOR UNKNOWN INDICATION
     Route: 048
  12. TRICOR [Concomitant]
     Indication: DRUG USE FOR UNKNOWN INDICATION
     Route: 048
  13. ACTOS [Concomitant]
     Indication: DRUG USE FOR UNKNOWN INDICATION
     Route: 048
  14. LASIX [Concomitant]
     Indication: DRUG USE FOR UNKNOWN INDICATION
     Route: 048

REACTIONS (36)
  - ABNORMAL BEHAVIOUR [None]
  - ACUTE RESPIRATORY FAILURE [None]
  - AMNESIA [None]
  - ANAEMIA [None]
  - ANAPHYLACTIC SHOCK [None]
  - ASTHENIA [None]
  - BACK PAIN [None]
  - BLOOD CREATININE INCREASED [None]
  - BLOOD UREA INCREASED [None]
  - BURNING SENSATION [None]
  - CERVICOBRACHIAL SYNDROME [None]
  - CONDITION AGGRAVATED [None]
  - CONFUSIONAL STATE [None]
  - DRUG WITHDRAWAL CONVULSIONS [None]
  - FALL [None]
  - HALLUCINATION [None]
  - HUMERUS FRACTURE [None]
  - HYPOAESTHESIA [None]
  - INCONTINENCE [None]
  - INTERVERTEBRAL DISC PROTRUSION [None]
  - JOINT DISLOCATION [None]
  - JOINT INJURY [None]
  - MENTAL STATUS CHANGES [None]
  - METABOLIC ENCEPHALOPATHY [None]
  - NECK INJURY [None]
  - OSTEONECROSIS [None]
  - PARAESTHESIA [None]
  - RENAL FAILURE ACUTE [None]
  - SLEEP TALKING [None]
  - SOMNAMBULISM [None]
  - SOMNOLENCE [None]
  - SPINAL OSTEOARTHRITIS [None]
  - STAPHYLOCOCCAL INFECTION [None]
  - UNRESPONSIVE TO STIMULI [None]
  - VERTIGO [None]
  - WHITE BLOOD CELL COUNT INCREASED [None]
